FAERS Safety Report 21279610 (Version 3)
Quarter: 2022Q3

REPORT INFORMATION
  Report Type: Other
  Country: US (occurrence: None)
  Receive Date: 20220901
  Receipt Date: 20220914
  Transmission Date: 20221026
  Serious: Yes (Hospitalization, Other)
  Sender: FDA-Public Use
  Company Number: US-ROCHE-3170811

PATIENT
  Age: 68 Year
  Sex: Female
  Weight: 63.560 kg

DRUGS (2)
  1. XOLAIR [Suspect]
     Active Substance: OMALIZUMAB
     Indication: Asthma
     Dosage: ONE INJECTION EACH ARM
     Route: 065
     Dates: start: 2019
  2. PREDNISONE [Concomitant]
     Active Substance: PREDNISONE

REACTIONS (7)
  - Cough [Recovered/Resolved]
  - Urticaria [Unknown]
  - Anaphylactic reaction [Unknown]
  - Asthma [Unknown]
  - Mite allergy [Unknown]
  - Dyspnoea [Recovered/Resolved]
  - Coagulopathy [Unknown]

NARRATIVE: CASE EVENT DATE: 20220801
